FAERS Safety Report 9741449 (Version 1)
Quarter: 2013Q4

REPORT INFORMATION
  Report Type: Spontaneous
  Country: GB (occurrence: GB)
  Receive Date: 20131209
  Receipt Date: 20131209
  Transmission Date: 20140711
  Serious: Yes (Hospitalization)
  Sender: FDA-Public Use
  Company Number: PHFR2013GB006930

PATIENT
  Age: 72 Year
  Sex: Male

DRUGS (4)
  1. VALSARTAN [Suspect]
     Indication: HYPERTENSION
     Dosage: 160 MG, QD IN THE MORNING
     Route: 048
     Dates: end: 20131118
  2. BENDROFLUMETHIAZIDE [Suspect]
     Indication: HYPERTENSION
     Dosage: 2.5 MG, QD IN THE MORNING
     Dates: end: 20131118
  3. AMLODIPINE [Concomitant]
     Dosage: UNK UKN, UNK
  4. CO-CODAMOL [Concomitant]
     Dosage: UNK UKN, UNK

REACTIONS (1)
  - Hyponatraemia [Recovering/Resolving]
